FAERS Safety Report 6962683-1 (Version None)
Quarter: 2010Q3

REPORT INFORMATION
  Report Type: 
  Country: None (occurrence: None)
  Receive Date: 20100823
  Receipt Date: 20100608
  Transmission Date: 20110219
  Serious: No
  Sender: FDA-Public Use
  Company Number: 013527

PATIENT
  Sex: Female
  Weight: 72.5 kg

DRUGS (3)
  1. CIMZIA [Suspect]
     Indication: CROHN'S DISEASE
     Dosage: (400 MG 1X/2 WEEKS SUBCUTANEOUS)
     Route: 058
     Dates: start: 20100526
  2. CIPROFLOXACIN [Concomitant]
  3. LEVAQUIN [Concomitant]

REACTIONS (1)
  - PARAESTHESIA [None]
